FAERS Safety Report 10391614 (Version 1)
Quarter: 2014Q3

REPORT INFORMATION
  Report Type: Report from Study
  Country: US (occurrence: US)
  Receive Date: 20140818
  Receipt Date: 20140818
  Transmission Date: 20150326
  Serious: No
  Sender: FDA-Public Use
  Company Number: US-ALEXION-A201002040

PATIENT

DRUGS (1)
  1. SOLIRIS [Suspect]
     Active Substance: ECULIZUMAB
     Indication: PAROXYSMAL NOCTURNAL HAEMOGLOBINURIA

REACTIONS (5)
  - Iron overload [Unknown]
  - Cardiac failure congestive [Unknown]
  - Epistaxis [Unknown]
  - Pulmonary hypertension [Unknown]
  - Hypothyroidism [Unknown]
